FAERS Safety Report 24671055 (Version 1)
Quarter: 2024Q4

REPORT INFORMATION
  Report Type: Spontaneous
  Country: US (occurrence: None)
  Receive Date: 20241127
  Receipt Date: 20241127
  Transmission Date: 20250115
  Serious: Yes (Other)
  Sender: Public
  Company Number: None

PATIENT
  Sex: Male

DRUGS (1)
  1. PIRFENIDONE [Suspect]
     Active Substance: PIRFENIDONE
     Dosage: FREQ: TAKE 1 TABLET BY MOUTH DAILY AT DINNER
     Route: 048
     Dates: start: 20221018

REACTIONS (2)
  - Chest pain [None]
  - Atrioventricular block [None]
